FAERS Safety Report 5065920-6 (Version None)
Quarter: 2006Q3

REPORT INFORMATION
  Report Type: 
  Country: None (occurrence: None)
  Receive Date: 20060731
  Receipt Date: 20060412
  Transmission Date: 20061208
  Serious: Yes (Death, Hospitalization)
  Sender: FDA-Public Use
  Company Number: PHEH2006US04790

PATIENT
  Age: 69 Year
  Sex: Female

DRUGS (16)
  1. EXJADE [Suspect]
     Indication: BLOOD IRON INCREASED
     Dosage: UNK, UNK
     Route: 048
     Dates: start: 20060228
  2. EXJADE [Suspect]
     Dosage: 1250 MG, QD
     Route: 048
     Dates: start: 20060206, end: 20060220
  3. REVLIMID [Concomitant]
     Indication: MYELODYSPLASTIC SYNDROME
     Dosage: 5 MG, BID
     Route: 048
     Dates: start: 20060206, end: 20060220
  4. HUMULIN 70/30 [Concomitant]
  5. SYNTHROID [Concomitant]
     Dosage: 1.5 NG, UNK
     Route: 048
  6. NEURONTIN [Concomitant]
     Dosage: 300 MG, UNK
     Route: 048
  7. LASIX [Concomitant]
  8. TRENTAL [Concomitant]
  9. COREG [Concomitant]
  10. RESTORIL [Concomitant]
  11. MAGNESIUM [Concomitant]
  12. VITAPLEX [Concomitant]
  13. VITAMIN A [Concomitant]
  14. LOSARTAN POSTASSIUM [Concomitant]
  15. K-DUR 10 [Concomitant]
  16. LANTUS [Concomitant]
     Dates: start: 20060101

REACTIONS (36)
  - APPETITE DISORDER [None]
  - ASTHENIA [None]
  - ATELECTASIS [None]
  - BILEVEL POSITIVE AIRWAY PRESSURE [None]
  - BIOPSY BONE MARROW ABNORMAL [None]
  - BLOOD CULTURE POSITIVE [None]
  - BONE MARROW FAILURE [None]
  - CACHEXIA [None]
  - CARDIAC FAILURE CONGESTIVE [None]
  - DIABETES MELLITUS INADEQUATE CONTROL [None]
  - DISEASE PROGRESSION [None]
  - DYSPNOEA [None]
  - ENCEPHALOPATHY [None]
  - FALL [None]
  - FATIGUE [None]
  - FIBULA FRACTURE [None]
  - FRACTURE [None]
  - GENERAL PHYSICAL HEALTH DETERIORATION [None]
  - HYPOTENSION [None]
  - LETHARGY [None]
  - MENTAL STATUS CHANGES [None]
  - METABOLIC ENCEPHALOPATHY [None]
  - MYELODYSPLASTIC SYNDROME [None]
  - NEUROPATHY [None]
  - OEDEMA [None]
  - PANCYTOPENIA [None]
  - PNEUMONIA [None]
  - PYREXIA [None]
  - RESPIRATORY DISTRESS [None]
  - RESPIRATORY FAILURE [None]
  - RESTRICTIVE CARDIOMYOPATHY [None]
  - RETINOPATHY [None]
  - STAPHYLOCOCCAL SEPSIS [None]
  - THERAPY NON-RESPONDER [None]
  - VASCULAR ACCESS COMPLICATION [None]
  - WRIST FRACTURE [None]
